FAERS Safety Report 8819882 (Version 1)
Quarter: 2012Q4

REPORT INFORMATION
  Report Type: 
  Country: US (occurrence: US)
  Receive Date: 20121001
  Receipt Date: 20121001
  Transmission Date: 20130627
  Serious: Yes (Other)
  Sender: FDA-Public Use
  Company Number: US-ABBOTT-12P-163-0989597-00

PATIENT

DRUGS (2)
  1. CYCLOSPORINE [Suspect]
     Indication: CYSTITIS INTERSTITIAL
  2. CYCLOSPORINE [Suspect]
     Indication: CYSTITIS INTERSTITIAL

REACTIONS (2)
  - No therapeutic response [Unknown]
  - Off label use [Unknown]
